FAERS Safety Report 14452573 (Version 1)
Quarter: 2018Q1

REPORT INFORMATION
  Report Type: Spontaneous
  Country: CA (occurrence: US)
  Receive Date: 20180129
  Receipt Date: 20180129
  Transmission Date: 20180509
  Serious: No
  Sender: FDA-Public Use
  Company Number: US-APOLLO HEALTH AND BEAUTY CARE INC.-2040942

PATIENT
  Sex: Female

DRUGS (1)
  1. TOPCARE ANTIBACTERIAL BERRY BLAST FOAMING HAND [Suspect]
     Active Substance: BENZALKONIUM CHLORIDE

REACTIONS (2)
  - Impaired healing [None]
  - Hypersensitivity [Recovered/Resolved]

NARRATIVE: CASE EVENT DATE: 20170905
